FAERS Safety Report 19030732 (Version 1)
Quarter: 2021Q1

REPORT INFORMATION
  Report Type: Spontaneous
  Country: US (occurrence: US)
  Receive Date: 20210319
  Receipt Date: 20210319
  Transmission Date: 20210420
  Serious: No
  Sender: FDA-Public Use
  Company Number: US-TAKEDA-2021TUS014593

PATIENT
  Sex: Male
  Weight: 43 kg

DRUGS (20)
  1. GAMMAGARD LIQUID [Suspect]
     Active Substance: HUMAN IMMUNOGLOBULIN G
     Indication: ASTHMA
     Dosage: 400 MILLIGRAM PER KG, 4/WEEK
     Route: 042
     Dates: start: 20200625
  2. OMEPRAZOLE. [Concomitant]
     Active Substance: OMEPRAZOLE
     Route: 065
  3. IMIPRAMINE [Concomitant]
     Active Substance: IMIPRAMINE
     Route: 065
  4. VITAMIN C [Concomitant]
     Active Substance: ASCORBIC ACID
     Route: 065
  5. VITAMIN D3 [Concomitant]
     Active Substance: CHOLECALCIFEROL
     Route: 065
  6. METHENAMINE [Concomitant]
     Active Substance: METHENAMINE
     Route: 065
  7. GAMMAGARD LIQUID [Suspect]
     Active Substance: HUMAN IMMUNOGLOBULIN G
     Indication: DEPRESSION
  8. TRELEGY ELLIPTA [Concomitant]
     Active Substance: FLUTICASONE FUROATE\UMECLIDINIUM BROMIDE\VILANTEROL TRIFENATATE
     Route: 065
  9. MAG?OX [Concomitant]
     Active Substance: MAGNESIUM OXIDE
     Route: 065
  10. REGLAN [Concomitant]
     Active Substance: METOCLOPRAMIDE HYDROCHLORIDE
     Route: 065
  11. DRONABINOL. [Concomitant]
     Active Substance: DRONABINOL
     Route: 065
  12. OXYBUTYNIN. [Concomitant]
     Active Substance: OXYBUTYNIN CHLORIDE
     Route: 065
  13. TPN [NICOTINAMIDE;PYRIDOXINE HYDROCHLORIDE;TYROSINE] [Concomitant]
     Active Substance: NIACINAMIDE\PYRIDOXINE HYDROCHLORIDE\TYROSINE
     Route: 065
  14. SERTRALINE [Concomitant]
     Active Substance: SERTRALINE HYDROCHLORIDE
     Route: 065
  15. GAMMAGARD LIQUID [Suspect]
     Active Substance: HUMAN IMMUNOGLOBULIN G
     Indication: PARVOVIRUS INFECTION
  16. ALBUTEROL [SALBUTAMOL] [Concomitant]
     Active Substance: ALBUTEROL
     Route: 065
  17. BACTRIM [Concomitant]
     Active Substance: SULFAMETHOXAZOLE\TRIMETHOPRIM
     Route: 065
  18. TACROLIMUS. [Concomitant]
     Active Substance: TACROLIMUS
     Route: 065
  19. MIDODRINE [Concomitant]
     Active Substance: MIDODRINE
     Route: 065
  20. ELECTROLYTES NOS [Concomitant]
     Active Substance: ELECTROLYTES NOS
     Route: 065

REACTIONS (1)
  - Gastrooesophageal reflux disease [Unknown]
